FAERS Safety Report 5119808-2 (Version None)
Quarter: 2006Q4

REPORT INFORMATION
  Report Type: 
  Country: None (occurrence: None)
  Receive Date: 20061003
  Receipt Date: 20060925
  Transmission Date: 20070319
  Serious: Yes (Hospitalization)
  Sender: FDA-Public Use
  Company Number: FR-NOVOPROD-257291

PATIENT
  Age: 54 Year
  Sex: Female

DRUGS (8)
  1. GLUCOPHAGE                         /00082701/ [Concomitant]
     Indication: DIABETES MELLITUS
     Dosage: 1.7 G, UNK
     Route: 048
     Dates: end: 20060404
  2. CHRONADALATE [Concomitant]
     Dates: end: 20060327
  3. NOVONORM [Suspect]
     Indication: DIABETES MELLITUS
     Dosage: 3 G, UNK
     Route: 048
     Dates: start: 20050101, end: 20060404
  4. PROGRAF [Concomitant]
     Dosage: 3.5 G, UNK
     Route: 048
  5. BLOOD TRANSFUSION, AUXILIARY PRODUCTS [Concomitant]
  6. APROVEL [Concomitant]
     Indication: HYPERTENSION
     Dates: start: 20060327
  7. TRIATEC [Concomitant]
     Indication: HYPERTENSION
     Dates: start: 20060327
  8. LEVOTHYROXINE SODIUM [Concomitant]

REACTIONS (1)
  - HAEMOLYTIC ANAEMIA [None]
